FAERS Safety Report 7568416-2 (Version None)
Quarter: 2011Q2

REPORT INFORMATION
  Report Type: 
  Country: None (occurrence: None)
  Receive Date: 20110623
  Receipt Date: 20110610
  Transmission Date: 20111010
  Serious: Yes (Hospitalization)
  Sender: FDA-Public Use
  Company Number: US-ROCHE-782657

PATIENT
  Age: 59 Year
  Sex: Female
  Weight: 96.5 kg

DRUGS (4)
  1. PACLITAXEL [Suspect]
     Dosage: LAST DOSE : 02 NOVEMBER 2010
     Route: 042
  2. BEVACIZUMAB [Suspect]
     Dosage: LAST DOSE : 02 NOVEMBER 2010
     Route: 042
  3. PACLITAXEL [Suspect]
     Indication: BREAST CANCER
     Dosage: FREQ: OVER 1 HOUR ON DAYS 1,8 AND 15
     Route: 042
     Dates: start: 20110328
  4. BEVACIZUMAB [Suspect]
     Indication: BREAST CANCER
     Dosage: FREQUENCY: DAILY
     Route: 042
     Dates: start: 20110413

REACTIONS (4)
  - HYPOKALAEMIA [None]
  - HYPOCALCAEMIA [None]
  - BLOOD CREATININE INCREASED [None]
  - BONE PAIN [None]
